FAERS Safety Report 7770071-3 (Version None)
Quarter: 2011Q3

REPORT INFORMATION
  Report Type: 
  Country: None (occurrence: None)
  Receive Date: 20110922
  Receipt Date: 20110208
  Transmission Date: 20111222
  Serious: No
  Sender: FDA-Public Use
  Company Number: US-ASTRAZENECA-2011SE08030

PATIENT
  Age: 42 Year
  Sex: Male

DRUGS (6)
  1. SEROQUEL XR [Suspect]
     Indication: DEPRESSION
     Route: 048
     Dates: start: 20110201
  2. SOMA [Concomitant]
  3. VICODIN [Concomitant]
  4. METAZIPINE [Concomitant]
  5. GENUVIA [Concomitant]
  6. CAPADEX [Concomitant]
     Indication: GASTROOESOPHAGEAL REFLUX DISEASE

REACTIONS (3)
  - PSYCHOTIC BEHAVIOUR [None]
  - BLOOD GLUCOSE INCREASED [None]
  - PANIC DISORDER [None]
